FAERS Safety Report 6134344-2 (Version None)
Quarter: 2009Q1

REPORT INFORMATION
  Report Type: 
  Country: None (occurrence: None)
  Receive Date: 20090327
  Receipt Date: 20090318
  Transmission Date: 20090719
  Serious: Yes (Hospitalization)
  Sender: FDA-Public Use
  Company Number: PHHY2009BR10401

PATIENT
  Age: 68 Year
  Sex: Female

DRUGS (2)
  1. DIOVAN AMLO FIX [Suspect]
     Dosage: 1 TAB (160 MG VALSARTAN/ 5 MG AMLODIPINE BESYLATE)
     Route: 048
     Dates: start: 20090221
  2. PLASIL [Suspect]
     Indication: NAUSEA

REACTIONS (3)
  - ABDOMINAL PAIN [None]
  - CONFUSIONAL STATE [None]
  - NAUSEA [None]
